FAERS Safety Report 7427731-3 (Version None)
Quarter: 2011Q2

REPORT INFORMATION
  Report Type: 
  Country: None (occurrence: None)
  Receive Date: 20110421
  Receipt Date: 20110415
  Transmission Date: 20111010
  Serious: Yes (Death, Life-Threatening, Hospitalization)
  Sender: FDA-Public Use
  Company Number: TR-ELI_LILLY_AND_COMPANY-TR201103005854

PATIENT
  Age: 21 Year
  Sex: Female

DRUGS (3)
  1. ZUCLOPENTHIXOL [Concomitant]
     Indication: DEPRESSION
     Dosage: 1 BOX
     Route: 048
     Dates: start: 20110317, end: 20110317
  2. CYMBALTA [Suspect]
     Indication: MAJOR DEPRESSION
     Dosage: 30 MG, UNK
     Dates: start: 20110201
  3. CYMBALTA [Suspect]
     Dosage: 1 BOX
     Dates: start: 20110317, end: 20110317

REACTIONS (6)
  - CONFUSIONAL STATE [None]
  - TACHYCARDIA [None]
  - COMPLETED SUICIDE [None]
  - INTENTIONAL OVERDOSE [None]
  - MYDRIASIS [None]
  - HYPOTENSION [None]
